FAERS Safety Report 5962539-7 (Version None)
Quarter: 2008Q4

REPORT INFORMATION
  Report Type: 
  Country: None (occurrence: None)
  Receive Date: 20081121
  Receipt Date: 20081111
  Transmission Date: 20090506
  Serious: Yes (Other)
  Sender: FDA-Public Use
  Company Number: US-PFIZER INC-2008095568

PATIENT
  Age: 37 Year
  Sex: Female
  Weight: 77.272 kg

DRUGS (5)
  1. LYRICA [Suspect]
     Indication: NEURALGIA
     Dates: start: 20080201
  2. SOLU-MEDROL [Suspect]
     Route: 042
     Dates: start: 20080201
  3. BACLOFEN [Concomitant]
  4. TRAMADOL HCL [Concomitant]
  5. IMURAN [Concomitant]

REACTIONS (1)
  - WEIGHT INCREASED [None]
